FAERS Safety Report 10352635 (Version 2)
Quarter: 2014Q3

REPORT INFORMATION
  Report Type: Spontaneous
  Country: US (occurrence: US)
  Receive Date: 20140730
  Receipt Date: 20140730
  Transmission Date: 20150326
  Serious: No
  Sender: FDA-Public Use
  Company Number: US-ABBVIE-13P-163-1159033-00

PATIENT
  Sex: Female
  Weight: 99.88 kg

DRUGS (1)
  1. SYNTHROID [Suspect]
     Active Substance: LEVOTHYROXINE SODIUM
     Indication: THYROID DISORDER
     Dates: start: 2013

REACTIONS (10)
  - Gastric pH decreased [Unknown]
  - Tremor [Unknown]
  - Scar [Unknown]
  - Gastrooesophageal reflux disease [Unknown]
  - Vomiting [Unknown]
  - Rash [Unknown]
  - Drug effect incomplete [Unknown]
  - Haemoptysis [Unknown]
  - Loss of consciousness [Unknown]
  - Alopecia [Unknown]

NARRATIVE: CASE EVENT DATE: 2013
